FAERS Safety Report 4639552-5 (Version None)
Quarter: 2005Q2

REPORT INFORMATION
  Report Type: 
  Country: None (occurrence: None)
  Receive Date: 20050415
  Receipt Date: 20050405
  Transmission Date: 20051028
  Serious: Yes (Life-Threatening)
  Sender: FDA-Public Use
  Company Number: SAGL-ZLB/05/35/FRA

PATIENT
  Age: 10 Month
  Sex: Female
  Weight: 8 kg

DRUGS (1)
  1. SANDOGLOBULIN [Suspect]
     Indication: HUMORAL IMMUNE DEFECT
     Dosage: 3 G, O.A.D., I.V.
     Route: 042
     Dates: start: 20041009, end: 20041010

REACTIONS (6)
  - CHILLS [None]
  - HYPOTENSION [None]
  - HYPOXIA [None]
  - INFUSION RELATED REACTION [None]
  - PALLOR [None]
  - PYREXIA [None]
